FAERS Safety Report 4920201-3 (Version None)
Quarter: 2006Q1

REPORT INFORMATION
  Report Type: 
  Country: None (occurrence: None)
  Receive Date: 20060223
  Receipt Date: 20060216
  Transmission Date: 20060701
  Serious: Yes (Hospitalization)
  Sender: FDA-Public Use
  Company Number: 2006GB00269

PATIENT
  Age: 78 Year
  Sex: Female

DRUGS (5)
  1. FELODIPINE [Suspect]
     Route: 048
     Dates: end: 20050820
  2. ENALAPRIL [Suspect]
     Route: 048
     Dates: end: 20050820
  3. BECLOMETHASONE DIPROPIONATE [Concomitant]
     Indication: ASTHMA
     Route: 055
  4. SALBUTAMOL [Concomitant]
     Indication: ASTHMA
     Route: 055
  5. ACETAMINOPHEN [Concomitant]
     Indication: PAIN
     Route: 048

REACTIONS (1)
  - FALL [None]
